FAERS Safety Report 16705343 (Version 2)
Quarter: 2019Q3

REPORT INFORMATION
  Report Type: Spontaneous
  Country: US (occurrence: US)
  Receive Date: 20190815
  Receipt Date: 20190821
  Transmission Date: 20191004
  Serious: Yes (Hospitalization)
  Sender: FDA-Public Use
  Company Number: US-KARYOPHARM THERAPEUTICS, INC.-2019KPT000377

PATIENT

DRUGS (2)
  1. XPOVIO [Suspect]
     Active Substance: SELINEXOR
     Indication: PLASMA CELL MYELOMA
     Dosage: 80 MG, 2X/WEEK
     Route: 048
     Dates: start: 20190718
  2. XPOVIO [Suspect]
     Active Substance: SELINEXOR
     Dosage: 60 MG, 2X/WEEK (DAY 1 AND 3)
     Route: 048
     Dates: start: 20190729

REACTIONS (1)
  - Herpes zoster [Unknown]
